FAERS Safety Report 24938239 (Version 1)
Quarter: 2025Q1

REPORT INFORMATION
  Report Type: Spontaneous
  Country: US (occurrence: US)
  Receive Date: 20250206
  Receipt Date: 20250206
  Transmission Date: 20250409
  Serious: Yes (Other)
  Sender: TEVA
  Company Number: US-TEVA-VS-3291363

PATIENT
  Age: 52 Year
  Sex: Female

DRUGS (1)
  1. UZEDY [Suspect]
     Active Substance: RISPERIDONE
     Route: 065

REACTIONS (3)
  - Dystonia [Unknown]
  - Parkinsonism [Unknown]
  - Incorrect dose administered [Unknown]
